FAERS Safety Report 18683882 (Version 1)
Quarter: 2020Q4

REPORT INFORMATION
  Report Type: Spontaneous
  Country: US (occurrence: US)
  Receive Date: 20201230
  Receipt Date: 20201230
  Transmission Date: 20210114
  Serious: No
  Sender: FDA-Public Use
  Company Number: US-ASTRAZENECA-2020SF61052

PATIENT
  Sex: Female

DRUGS (1)
  1. IMFINZI [Suspect]
     Active Substance: DURVALUMAB
     Dosage: UNKNOWN DOSE; UNKNOWN FREQUENCY; NOW ON SIXTH TREATMENT
     Route: 042

REACTIONS (3)
  - Arthralgia [Unknown]
  - Paraesthesia [Unknown]
  - Fatigue [Unknown]
